FAERS Safety Report 22011183 (Version 1)
Quarter: 2023Q1

REPORT INFORMATION
  Report Type: Spontaneous
  Country: US (occurrence: US)
  Receive Date: 20230220
  Receipt Date: 20230220
  Transmission Date: 20230417
  Serious: Yes (Hospitalization, Other)
  Sender: FDA-Public Use
  Company Number: US-SA-SAC20230217000401

PATIENT
  Sex: Male

DRUGS (1)
  1. DUPIXENT [Suspect]
     Active Substance: DUPILUMAB
     Indication: Psoriatic arthropathy
     Dosage: 300 MG, Q15D
     Route: 058

REACTIONS (8)
  - Diabetes mellitus inadequate control [Recovering/Resolving]
  - Secretion discharge [Recovering/Resolving]
  - Dermatitis [Recovering/Resolving]
  - Skin infection [Recovering/Resolving]
  - Scar [Recovering/Resolving]
  - Pruritus [Recovering/Resolving]
  - Hypoaesthesia [Recovering/Resolving]
  - Product use in unapproved indication [Unknown]
